FAERS Safety Report 5501569-6 (Version None)
Quarter: 2007Q4

REPORT INFORMATION
  Report Type: 
  Country: None (occurrence: None)
  Receive Date: 20071030
  Receipt Date: 20071026
  Transmission Date: 20080405
  Serious: Yes (Death, Other)
  Sender: FDA-Public Use
  Company Number: CA-BRISTOL-MYERS SQUIBB COMPANY-13958384

PATIENT
  Sex: Female

DRUGS (1)
  1. DESYREL [Suspect]

REACTIONS (2)
  - DEATH [None]
  - DYSPHAGIA [None]
